FAERS Safety Report 13567141 (Version 1)
Quarter: 2017Q2

REPORT INFORMATION
  Report Type: Spontaneous
  Country: US (occurrence: US)
  Receive Date: 20170521
  Receipt Date: 20170521
  Transmission Date: 20170830
  Serious: Yes (Hospitalization, Disabling)
  Sender: FDA-Public Use
  Company Number: None

PATIENT
  Age: 81 Year
  Sex: Male
  Weight: 54 kg

DRUGS (9)
  1. HIGH BLOOD PRESSURE MEDICATION [Concomitant]
     Active Substance: UNSPECIFIED INGREDIENT
  2. MULTIVITAMIN FOR MEN OVER 50 [Concomitant]
  3. VITAMIN B12 [Concomitant]
     Active Substance: CYANOCOBALAMIN
  4. HERBAL SUPPLEMENT [Concomitant]
     Active Substance: HERBALS
  5. OMEGA XL [Concomitant]
     Active Substance: DIETARY SUPPLEMENT
  6. MELOXICAM. [Suspect]
     Active Substance: MELOXICAM
  7. VITAMIN C [Concomitant]
     Active Substance: ASCORBIC ACID
  8. LAXATIVES [Concomitant]
     Active Substance: UNSPECIFIED INGREDIENT
  9. SLEEP HERBAL [Concomitant]

REACTIONS (4)
  - Dizziness [None]
  - Cerebrovascular accident [None]
  - Loss of consciousness [None]
  - Ulcer haemorrhage [None]

NARRATIVE: CASE EVENT DATE: 20140910
